FAERS Safety Report 8814222 (Version 2)
Quarter: 2014Q1

REPORT INFORMATION
  Report Type: Spontaneous
  Country: US (occurrence: US)
  Receive Date: 20120928
  Receipt Date: 20140115
  Transmission Date: 20141002
  Serious: Yes (Hospitalization)
  Sender: FDA-Public Use
  Company Number: US-BAYER-2012-099993

PATIENT
  Age: 38 Year
  Sex: Female

DRUGS (7)
  1. YASMIN [Suspect]
  2. DILAUDID [Concomitant]
     Indication: PAIN
     Dosage: UNK UNK, PRN
  3. PERCOCET [Concomitant]
  4. IBUPROFEN [Concomitant]
     Dosage: 600 MG, Q6HPRN (EVERY 6 HOURS AS NEEDED)
     Dates: start: 20050408
  5. LEVOTHYROXINE [Concomitant]
     Dosage: 75 MCG QDAY
     Dates: start: 20050408
  6. VICODIN [Concomitant]
     Dosage: UNK
     Dates: start: 20050408
  7. OXYCONTIN [Concomitant]
     Dosage: UNK
     Dates: start: 20050408

REACTIONS (1)
  - Deep vein thrombosis [None]
